FAERS Safety Report 7458953-3 (Version None)
Quarter: 2011Q2

REPORT INFORMATION
  Report Type: 
  Country: None (occurrence: None)
  Receive Date: 20110504
  Receipt Date: 20110425
  Transmission Date: 20111010
  Serious: Yes (Hospitalization)
  Sender: FDA-Public Use
  Company Number: US-ASTRAZENECA-2011SE23876

PATIENT
  Age: 74 Year
  Sex: Female
  Weight: 71 kg

DRUGS (2)
  1. RIVOTRIL [Concomitant]
     Route: 048
     Dates: start: 20070101
  2. SEROQUEL [Suspect]
     Route: 048
     Dates: start: 20070101

REACTIONS (5)
  - ANGIOPLASTY [None]
  - SOMNOLENCE [None]
  - CORONARY ARTERY BYPASS [None]
  - SYNCOPE [None]
  - ARTERIAL OCCLUSIVE DISEASE [None]
